FAERS Safety Report 6403700-7 (Version None)
Quarter: 2009Q4

REPORT INFORMATION
  Report Type: 
  Country: None (occurrence: None)
  Receive Date: 20091016
  Receipt Date: 20091005
  Transmission Date: 20100525
  Serious: Yes (Other)
  Sender: FDA-Public Use
  Company Number: US-GENENTECH-292184

PATIENT

DRUGS (3)
  1. BEVACIZUMAB [Suspect]
     Indication: METASTASES TO LIVER
     Dosage: 10 MG/KG, UNK
     Route: 042
  2. HEPARIN SODIUM [Suspect]
     Indication: DRUG USE FOR UNKNOWN INDICATION
     Route: 065
  3. OXALIPLATIN [Suspect]
     Indication: METASTASES TO LIVER
     Dosage: 140 MG/M2, UNK
     Route: 065

REACTIONS (2)
  - HYPOKALAEMIA [None]
  - TRANSAMINASES INCREASED [None]
